FAERS Safety Report 9742205 (Version 2)
Quarter: 2013Q4

REPORT INFORMATION
  Report Type: Spontaneous
  Country: JP (occurrence: JP)
  Receive Date: 20131210
  Receipt Date: 20131210
  Transmission Date: 20140711
  Serious: Yes (Death, Hospitalization)
  Sender: FDA-Public Use
  Company Number: JP-BAYER-2013-090692

PATIENT
  Age: 76 Year
  Sex: Female

DRUGS (10)
  1. BAYASPIRIN [Suspect]
     Indication: CEREBRAL INFARCTION
     Dosage: DAILY DOSE 100 MG
     Route: 048
     Dates: end: 20130818
  2. PARIET [Suspect]
     Route: 048
  3. ISCOTIN [Suspect]
     Indication: INTERSTITIAL LUNG DISEASE
     Dosage: DAILY DOSE 100 MG
     Route: 048
     Dates: end: 20130719
  4. BLOPRESS [Suspect]
     Indication: HYPERTENSION
     Dosage: DAILY DOSE 4 MG
     Route: 048
     Dates: end: 20130719
  5. BONALON [Suspect]
     Indication: INTERSTITIAL LUNG DISEASE
     Dosage: DAILY DOSE 35 MG
     Route: 048
  6. IMURAN [Suspect]
     Indication: INTERSTITIAL LUNG DISEASE
     Dosage: DAILY DOSE 100 MG
     Route: 048
  7. PREDONINE [Suspect]
     Indication: INTERSTITIAL LUNG DISEASE
     Dosage: DAILY DOSE 12.5 MG
     Route: 048
  8. BAKTAR [Suspect]
     Indication: INTERSTITIAL LUNG DISEASE
     Route: 048
  9. MAGMITT [Suspect]
     Indication: INTERSTITIAL LUNG DISEASE
     Dosage: DAILY DOSE 750 MG
     Route: 048
     Dates: end: 20130719
  10. CODEINE PHOSPHATE [Suspect]
     Indication: INTERSTITIAL LUNG DISEASE
     Dosage: DAILY DOSE 60 MG
     Route: 048
     Dates: end: 20130719

REACTIONS (1)
  - Drug-induced liver injury [Fatal]
